FAERS Safety Report 9537369 (Version 1)
Quarter: 2013Q3

REPORT INFORMATION
  Report Type: Report from Study
  Country: AR (occurrence: AR)
  Receive Date: 20130919
  Receipt Date: 20130919
  Transmission Date: 20140515
  Serious: Yes (Hospitalization, Other)
  Sender: FDA-Public Use
  Company Number: PHHY2013AR103800

PATIENT
  Sex: Female

DRUGS (1)
  1. DIOVAN D [Suspect]
     Dosage: 1 DF, (160/12.5 MG)
     Route: 048

REACTIONS (1)
  - Haemorrhage [Recovering/Resolving]
